FAERS Safety Report 6933715-1 (Version None)
Quarter: 2010Q3

REPORT INFORMATION
  Report Type: 
  Country: None (occurrence: None)
  Receive Date: 20100820
  Receipt Date: 20100720
  Transmission Date: 20110219
  Serious: No
  Sender: FDA-Public Use
  Company Number: US-BAYER-201028656NA

PATIENT
  Age: 29 Year
  Sex: Female
  Weight: 59 kg

DRUGS (3)
  1. ULTRAVIST 300 [Suspect]
     Indication: PRODUCT USED FOR UNKNOWN INDICATION
     Dates: start: 20091113, end: 20091113
  2. ULTRAVIST 150 [Suspect]
     Indication: LYMPHOMA
     Dosage: TOTAL DAILY DOSE: 100 ML
     Route: 042
     Dates: start: 20100720, end: 20100720
  3. ORAL CONTRAST [Concomitant]

REACTIONS (1)
  - CONJUNCTIVITIS INFECTIVE [None]
